FAERS Safety Report 22182783 (Version 12)
Quarter: 2024Q2

REPORT INFORMATION
  Report Type: Spontaneous
  Country: US (occurrence: US)
  Receive Date: 20230406
  Receipt Date: 20240409
  Transmission Date: 20240716
  Serious: Yes (Hospitalization, Other)
  Sender: FDA-Public Use
  Company Number: US-KARYOPHARM-2023KPT000959

PATIENT

DRUGS (16)
  1. XPOVIO [Suspect]
     Active Substance: SELINEXOR
     Indication: Plasma cell myeloma
     Dosage: 80 MG, WEEKLY
     Route: 048
     Dates: start: 20230307, end: 202305
  2. XPOVIO [Suspect]
     Active Substance: SELINEXOR
     Dosage: 80 MG, 2X/WEEK
     Route: 048
     Dates: start: 202305, end: 20230517
  3. XPOVIO [Suspect]
     Active Substance: SELINEXOR
     Dosage: 80 MG, WEEKLY
     Route: 048
     Dates: start: 2023, end: 20230923
  4. XPOVIO [Suspect]
     Active Substance: SELINEXOR
     Dosage: 40 MG, WEEKLY
     Route: 048
     Dates: start: 20231204, end: 202403
  5. ACYCLOVIR [Concomitant]
     Active Substance: ACYCLOVIR
  6. DEXAMETHASONE [Concomitant]
     Active Substance: DEXAMETHASONE
  7. LISINOPRIL [Concomitant]
     Active Substance: LISINOPRIL
  8. XARELTO [Concomitant]
     Active Substance: RIVAROXABAN
  9. EMEND [Concomitant]
     Active Substance: APREPITANT
     Indication: Nausea
     Dosage: UNK
     Dates: end: 202305
  10. KYPROLIS [Concomitant]
     Active Substance: CARFILZOMIB
  11. PREDNISONE [Concomitant]
     Active Substance: PREDNISONE
  12. ZOFRAN [Concomitant]
     Active Substance: ONDANSETRON HYDROCHLORIDE
  13. AMLODIPINE [Concomitant]
     Active Substance: AMLODIPINE BESYLATE
  14. ATORVASTATIN [Concomitant]
     Active Substance: ATORVASTATIN
  15. BISOPROLOL [Concomitant]
     Active Substance: BISOPROLOL\BISOPROLOL FUMARATE
  16. ELIQUIS [Concomitant]
     Active Substance: APIXABAN

REACTIONS (15)
  - COVID-19 [Unknown]
  - Cardiac valve vegetation [Not Recovered/Not Resolved]
  - Device related infection [Unknown]
  - Fall [Unknown]
  - Blood pressure decreased [Unknown]
  - Cardiac failure chronic [Unknown]
  - Loss of consciousness [Unknown]
  - Rash [Unknown]
  - Bacterial infection [Unknown]
  - Fatigue [Not Recovered/Not Resolved]
  - Haemoglobin decreased [Not Recovered/Not Resolved]
  - White blood cell count decreased [Unknown]
  - Platelet count decreased [Not Recovered/Not Resolved]
  - Diarrhoea [Unknown]
  - Nausea [Recovered/Resolved]

NARRATIVE: CASE EVENT DATE: 20230101
